FAERS Safety Report 4993600-1 (Version None)
Quarter: 2006Q2

REPORT INFORMATION
  Report Type: 
  Country: None (occurrence: None)
  Receive Date: 20060505
  Receipt Date: 20051221
  Transmission Date: 20061013
  Serious: Yes (Other)
  Sender: FDA-Public Use
  Company Number: PHEH2005US13736

PATIENT
  Age: 39 Year
  Sex: Female
  Weight: 115.19 kg

DRUGS (9)
  1. RITALIN LA [Suspect]
     Indication: SOMNOLENCE
     Dosage: 40 MG, QD
     Route: 048
     Dates: start: 20051101, end: 20060309
  2. ADDERALL 10 [Concomitant]
     Indication: SOMNOLENCE
     Dosage: 20 MG, BID
     Route: 048
     Dates: start: 19980717
  3. RITALIN [Concomitant]
     Indication: SOMNOLENCE
     Dosage: 20 MG 2 BID
     Dates: start: 20060310
  4. RITALIN [Concomitant]
     Dosage: 80 MG, QD
     Route: 048
     Dates: start: 19970101, end: 20051101
  5. KLONOPIN [Concomitant]
     Indication: SLEEP DISORDER
     Dosage: 2 MG 2 HS
     Route: 048
     Dates: start: 20001112
  6. REMERON [Concomitant]
     Indication: SLEEP DISORDER
     Dosage: 15 MG 2 HS
     Route: 048
     Dates: start: 20031019
  7. AMBIEN [Concomitant]
     Dosage: 10 MG, QHS
     Dates: start: 20030718
  8. FOLIC ACID [Concomitant]
     Dosage: 1 TABLET DAILY
     Route: 048
     Dates: start: 20020205
  9. ADDERALL XR 10 [Suspect]
     Indication: SOMNOLENCE
     Dosage: 20 MG, QD
     Dates: start: 20051101

REACTIONS (8)
  - ANOREXIA [None]
  - CATATONIA [None]
  - CONDITION AGGRAVATED [None]
  - CONVULSION [None]
  - HYPERHIDROSIS [None]
  - NARCOLEPSY [None]
  - NAUSEA [None]
  - SARCOIDOSIS [None]
